FAERS Safety Report 8227047-1 (Version None)
Quarter: 2012Q1

REPORT INFORMATION
  Report Type: 
  Country: None (occurrence: None)
  Receive Date: 20120322
  Receipt Date: 20120320
  Transmission Date: 20120608
  Serious: No
  Sender: FDA-Public Use
  Company Number: US-PFIZER INC-2012072867

PATIENT
  Sex: Female

DRUGS (2)
  1. LISINOPRIL [Concomitant]
     Indication: HYPERTENSION
     Dosage: UNK
  2. ADVIL PM [Suspect]
     Indication: ARTHRALGIA
     Dosage: TWO CAPLETS ONCE AT NIGHT
     Route: 048
     Dates: start: 20120301, end: 20120303

REACTIONS (3)
  - DRUG INEFFECTIVE [None]
  - INSOMNIA [None]
  - FEELING JITTERY [None]
